FAERS Safety Report 24547116 (Version 1)
Quarter: 2024Q4

REPORT INFORMATION
  Report Type: Spontaneous
  Country: FR (occurrence: FR)
  Receive Date: 20241025
  Receipt Date: 20241025
  Transmission Date: 20250114
  Serious: Yes (Other)
  Sender: ORGANON
  Company Number: FR-ORGANON-O2410FRA001709

PATIENT
  Sex: Female

DRUGS (1)
  1. NEXPLANON [Suspect]
     Active Substance: ETONOGESTREL
     Dosage: 1 IMPLANT
     Route: 065

REACTIONS (4)
  - General anaesthesia [Unknown]
  - Device deployment issue [Not Recovered/Not Resolved]
  - Device issue [Not Recovered/Not Resolved]
  - Complication associated with device [Recovered/Resolved]
